FAERS Safety Report 8777362 (Version 2)
Quarter: 2012Q4

REPORT INFORMATION
  Report Type: 
  Country: DE (occurrence: GB)
  Receive Date: 20120911
  Receipt Date: 20121008
  Transmission Date: 20130627
  Serious: Yes (Hospitalization)
  Sender: FDA-Public Use
  Company Number: GB-FRI-1000038389

PATIENT
  Age: 80 Year
  Weight: 60 kg

DRUGS (8)
  1. MEMANTINE [Suspect]
     Indication: DEMENTIA ALZHEIMER^S TYPE
     Dosage: 20 MG
     Route: 048
     Dates: start: 20120627, end: 2012
  2. MEMANTINE [Suspect]
     Indication: DEMENTIA ALZHEIMER^S TYPE
     Route: 048
     Dates: start: 2012, end: 20120820
  3. CARVEDILOL [Concomitant]
     Dosage: 25 mg
  4. FUROSEMIDE [Concomitant]
     Dosage: 40 mg
  5. OMEPRAZOLE [Concomitant]
     Dosage: 20 mg
  6. PERINDOPRIL [Concomitant]
     Dosage: 4 mg
  7. SIMVASTATIN [Concomitant]
     Dosage: 40 mg
  8. TAMSULOSIN [Concomitant]
     Dosage: 400 mcg

REACTIONS (9)
  - Cardiac failure congestive [Recovered/Resolved]
  - Condition aggravated [Recovered/Resolved]
  - Metastasis [Unknown]
  - Necrosis [Unknown]
  - Mood altered [Recovered/Resolved]
  - Orbital pseudotumour [Unknown]
  - Eye swelling [Unknown]
  - Exophthalmos [Unknown]
  - Conjunctival oedema [Unknown]
